FAERS Safety Report 9162735 (Version 1)
Quarter: 2013Q1

REPORT INFORMATION
  Report Type: Report from Study
  Country: US (occurrence: US)
  Receive Date: 20130314
  Receipt Date: 20130314
  Transmission Date: 20140127
  Serious: Yes (Death, Life-Threatening, Hospitalization, Other)
  Sender: FDA-Public Use
  Company Number: PHHO2011US03505

PATIENT
  Age: 55 Year
  Sex: Male
  Weight: 125 kg

DRUGS (10)
  1. FORTECORTIN [Suspect]
     Dosage: 20 MG, QD
     Dates: start: 20101129, end: 20110211
  2. PLACEBO [Suspect]
     Indication: PLASMA CELL MYELOMA
     Dosage: 20 MG, M/W/F
     Route: 048
     Dates: start: 20101129, end: 20110211
  3. VELCADE [Suspect]
     Dosage: 3.4 MG, UNK
     Route: 042
     Dates: start: 20101129, end: 20110210
  4. ALLOPURINOL [Concomitant]
  5. TRICOR [Concomitant]
  6. NORVASC [Concomitant]
  7. CRESTOR [Concomitant]
  8. LOVAZA [Concomitant]
  9. ACTOS [Concomitant]
  10. ACYCLOVIR [Concomitant]

REACTIONS (12)
  - Haemophilus sepsis [Fatal]
  - Dehydration [Fatal]
  - Pyrexia [Fatal]
  - Influenza like illness [Fatal]
  - Lung consolidation [Fatal]
  - Unresponsive to stimuli [Fatal]
  - Cardiac failure [Fatal]
  - Cardiac arrest [Fatal]
  - Cardiomegaly [Fatal]
  - Hypoxic-ischaemic encephalopathy [Fatal]
  - Renal failure acute [Unknown]
  - Blood creatinine increased [Unknown]
